FAERS Safety Report 8759979 (Version 1)
Quarter: 2012Q4

REPORT INFORMATION
  Report Type: 
  Country: DE (occurrence: DE)
  Receive Date: 20120829
  Receipt Date: 20120829
  Transmission Date: 20130627
  Serious: Yes (Other)
  Sender: FDA-Public Use
  Company Number: DE-ASTRAZENECA-2012SE60170

PATIENT
  Sex: Female
  Weight: 88 kg

DRUGS (6)
  1. CANDESARTAN [Suspect]
     Indication: HYPERTENSION
     Route: 048
  2. MINOXIDIL [Suspect]
     Indication: HYPERTENSION
     Route: 048
  3. MOXONIDINE [Suspect]
     Indication: HYPERTENSION
     Route: 048
  4. BISOPROLOL [Concomitant]
     Indication: HYPERTENSION
     Route: 048
  5. HYDROCHLOROTHIAZID [Concomitant]
     Indication: HYPERTENSION
     Route: 048
  6. AMLODIPINE [Concomitant]
     Indication: HYPERTENSION
     Route: 048

REACTIONS (2)
  - Stillbirth [Recovered/Resolved]
  - Exposure during pregnancy [Unknown]
